FAERS Safety Report 7619444-X (Version None)
Quarter: 2011Q3

REPORT INFORMATION
  Report Type: 
  Country: None (occurrence: None)
  Receive Date: 20110719
  Receipt Date: 20110708
  Transmission Date: 20111222
  Serious: No
  Sender: FDA-Public Use
  Company Number: US-BIOGENIDEC-2011BI025584

PATIENT
  Sex: Female

DRUGS (1)
  1. TYSABRI [Suspect]
     Indication: MULTIPLE SCLEROSIS
     Route: 042
     Dates: start: 20081105

REACTIONS (5)
  - DIARRHOEA [None]
  - PERIARTHRITIS [None]
  - MUSCULOSKELETAL PAIN [None]
  - MEMORY IMPAIRMENT [None]
  - DRUG INEFFECTIVE [None]
